FAERS Safety Report 12400172 (Version 3)
Quarter: 2016Q3

REPORT INFORMATION
  Report Type: Report from Study
  Country: US (occurrence: US)
  Receive Date: 20160524
  Receipt Date: 20160824
  Transmission Date: 20161109
  Serious: Yes (Death, Hospitalization, Other)
  Sender: FDA-Public Use
  Company Number: US-EXELIXIS-CABO-16006407

PATIENT
  Age: 74 Year
  Sex: Female
  Weight: 77.2 kg

DRUGS (17)
  1. COMETRIQ [Suspect]
     Active Substance: CABOZANTINIB S-MALATE
     Indication: ENDOMETRIAL CANCER
     Dosage: 60 MG, QD
     Route: 048
     Dates: start: 201604, end: 20160510
  2. COMETRIQ [Suspect]
     Active Substance: CABOZANTINIB S-MALATE
     Indication: UTERINE CANCER
  3. ATIVAN [Concomitant]
     Active Substance: LORAZEPAM
  4. HALDOL [Concomitant]
     Active Substance: HALOPERIDOL
  5. ALLEGRA [Concomitant]
     Active Substance: FEXOFENADINE HYDROCHLORIDE
  6. OMEPRAZOLE. [Concomitant]
     Active Substance: OMEPRAZOLE
  7. MIRALAX [Concomitant]
     Active Substance: POLYETHYLENE GLYCOL 3350
  8. VITAMIN D3 [Concomitant]
     Active Substance: CHOLECALCIFEROL
  9. SCOPOLAMINE [Concomitant]
     Active Substance: SCOPOLAMINE
  10. COMPAZINE [Concomitant]
     Active Substance: PROCHLORPERAZINE MALEATE
  11. DUONEB [Concomitant]
     Active Substance: ALBUTEROL SULFATE\IPRATROPIUM BROMIDE
  12. LEVSIN [Concomitant]
     Active Substance: HYOSCYAMINE SULFATE
  13. ROBITUSSIN (GUAIFENESIN) [Concomitant]
     Active Substance: GUAIFENESIN
  14. FLONASE [Concomitant]
     Active Substance: FLUTICASONE PROPIONATE
  15. MULTIVITAMIN [Concomitant]
     Active Substance: VITAMINS
  16. MORPHINE [Concomitant]
     Active Substance: MORPHINE
  17. IRON [Concomitant]
     Active Substance: IRON

REACTIONS (8)
  - Malignant neoplasm progression [Fatal]
  - Urinary tract infection [Unknown]
  - Hypertension [Unknown]
  - Pancytopenia [Unknown]
  - Hyperlipidaemia [Unknown]
  - Off label use [Unknown]
  - Pneumonia [Recovering/Resolving]
  - Lactic acidosis [Unknown]

NARRATIVE: CASE EVENT DATE: 20160503
